FAERS Safety Report 7823642-X (Version None)
Quarter: 2011Q4

REPORT INFORMATION
  Report Type: 
  Country: None (occurrence: None)
  Receive Date: 20111019
  Receipt Date: 20111019
  Transmission Date: 20120403
  Serious: No
  Sender: FDA-Public Use
  Company Number: None

PATIENT
  Age: 82 Year
  Sex: Male
  Weight: 65.77 kg

DRUGS (1)
  1. UROXATRAL [Suspect]
     Indication: BENIGN PROSTATIC HYPERPLASIA
     Dosage: 10MG
     Route: 048
     Dates: start: 20110925, end: 20111015

REACTIONS (2)
  - URINE BILIRUBIN INCREASED [None]
  - LIVER FUNCTION TEST ABNORMAL [None]
